FAERS Safety Report 7424226-8 (Version None)
Quarter: 2011Q2

REPORT INFORMATION
  Report Type: 
  Country: None (occurrence: None)
  Receive Date: 20110419
  Receipt Date: 20110330
  Transmission Date: 20111010
  Serious: Yes (Other)
  Sender: FDA-Public Use
  Company Number: US-BAYER-200934310NA

PATIENT
  Age: 44 Year
  Sex: Male
  Weight: 86.4 kg

DRUGS (12)
  1. HEPARIN [Concomitant]
     Dosage: 2800
     Dates: start: 20030903
  2. METOPROLOL [Concomitant]
  3. TORSEMIDE [Concomitant]
  4. MILRINONE [Concomitant]
     Dosage: UNK
     Dates: start: 20030903
  5. WARFARIN [Concomitant]
     Dosage: UNK
  6. VANCOMYCIN [Concomitant]
     Dosage: 1 GM
     Dates: start: 20030903
  7. TRASYLOL [Suspect]
     Indication: TRICUSPID VALVE REPLACEMENT
     Dosage: 200 ML, LOADING DOSE
     Route: 042
     Dates: start: 20030903, end: 20030913
  8. DIGOXIN [Concomitant]
  9. VASOPRESSIN [Concomitant]
     Dosage: UNK
     Dates: start: 20030903
  10. FUROSEMIDE [Concomitant]
  11. TRASYLOL [Suspect]
     Dosage: 50 ML/HOUR INFUSION RATE
     Route: 042
     Dates: start: 20030903, end: 20030903
  12. NOREPINEPHRINE BITARTRATE [Concomitant]
     Dosage: UNK
     Dates: start: 20030903

REACTIONS (16)
  - RENAL INJURY [None]
  - SCROTAL OEDEMA [None]
  - INJURY [None]
  - POST PROCEDURAL HAEMORRHAGE [None]
  - POST PROCEDURAL COMPLICATION [None]
  - PAIN [None]
  - DEPRESSION [None]
  - MULTI-ORGAN FAILURE [None]
  - HAEMODIALYSIS [None]
  - UNEVALUABLE EVENT [None]
  - NERVOUSNESS [None]
  - RENAL FAILURE [None]
  - ANXIETY [None]
  - FEAR [None]
  - ANHEDONIA [None]
  - EMOTIONAL DISTRESS [None]
